FAERS Safety Report 5884683-5 (Version None)
Quarter: 2008Q3

REPORT INFORMATION
  Report Type: 
  Country: None (occurrence: None)
  Receive Date: 20080916
  Receipt Date: 20080909
  Transmission Date: 20090109
  Serious: Yes (Hospitalization)
  Sender: FDA-Public Use
  Company Number: DE-AMGEN-UK284162

PATIENT
  Sex: Female

DRUGS (7)
  1. NEULASTA [Suspect]
     Indication: CHEMOTHERAPY
     Route: 058
     Dates: start: 20080508, end: 20080522
  2. EPIRUBICIN [Concomitant]
     Route: 042
     Dates: start: 20080507
  3. EPIRUBICIN [Concomitant]
     Route: 042
     Dates: start: 20080521
  4. PACLITAXEL [Concomitant]
     Route: 065
  5. CYCLOPHOSPHAMIDE [Concomitant]
     Route: 065
  6. FORTECORTIN [Concomitant]
     Route: 042
     Dates: start: 20080521, end: 20080523
  7. ZOFRAN [Concomitant]
     Route: 042
     Dates: start: 20080521, end: 20080521

REACTIONS (2)
  - ANGINA PECTORIS [None]
  - LEUKOCYTOSIS [None]
